FAERS Safety Report 4875676-5 (Version None)
Quarter: 2006Q1

REPORT INFORMATION
  Report Type: 
  Country: None (occurrence: None)
  Receive Date: 20060105
  Receipt Date: 20051223
  Transmission Date: 20060701
  Serious: Yes (Other)
  Sender: FDA-Public Use
  Company Number: 13137

PATIENT
  Age: 76 Year
  Sex: Male
  Weight: 69 kg

DRUGS (11)
  1. DACARBAZINE [Suspect]
     Indication: MALIGNANT MELANOMA STAGE IV
     Dosage: 1780 MG DAILY IV
     Route: 042
     Dates: start: 20051020
  2. DACARBAZINE [Suspect]
     Indication: MALIGNANT MELANOMA STAGE IV
     Dosage: 1400 MG DAILY IV
     Route: 042
     Dates: start: 20051206
  3. BOSENTAN 500 MG BID OR PLACEBO (CODE NOT BROKEN) [Suspect]
     Indication: MALIGNANT MELANOMA STAGE IV
     Dosage: 500 MG BID PO
     Route: 048
     Dates: start: 20051020, end: 20051130
  4. BOSENTAN 500 MG BID OR PLACEBO (CODE NOT BROKEN) [Suspect]
     Indication: MALIGNANT MELANOMA STAGE IV
     Dosage: 500 MG BID PO
     Route: 048
     Dates: start: 20051206
  5. FRUSEMIDE [Concomitant]
  6. POTASSIUM CHLORIDE [Concomitant]
  7. WARFARIN SODIUM [Concomitant]
  8. CARVEDILOL [Concomitant]
  9. TRANDOLAPRIL [Concomitant]
  10. DEXAMETHASONE TAB [Concomitant]
  11. DOLASETRON MESILATE [Concomitant]

REACTIONS (2)
  - NEUTROPENIA [None]
  - THROMBOCYTOPENIA [None]
